APPROVED DRUG PRODUCT: AMOXICILLIN AND CLAVULANATE POTASSIUM
Active Ingredient: AMOXICILLIN; CLAVULANATE POTASSIUM
Strength: 1GM;EQ 62.5MG BASE
Dosage Form/Route: TABLET, EXTENDED RELEASE;ORAL
Application: A090227 | Product #001 | TE Code: AB
Applicant: SANDOZ INC
Approved: Apr 21, 2010 | RLD: No | RS: Yes | Type: RX